FAERS Safety Report 9265151 (Version 1)
Quarter: 2013Q2

REPORT INFORMATION
  Report Type: Spontaneous
  Country: US (occurrence: US)
  Receive Date: 20130501
  Receipt Date: 20130501
  Transmission Date: 20140414
  Serious: Yes (Other)
  Sender: FDA-Public Use
  Company Number: US-PFIZER INC-2013133311

PATIENT
  Age: 52 Year
  Sex: Female
  Weight: 48.98 kg

DRUGS (2)
  1. GABAPENTIN [Suspect]
     Indication: MIGRAINE
     Dosage: 100 MG, 2X/DAY
     Route: 048
     Dates: start: 2009
  2. FIORINAL [Concomitant]
     Indication: HEADACHE
     Dosage: UNK, AS NEEDED

REACTIONS (6)
  - Diplopia [Unknown]
  - Malaise [Unknown]
  - Migraine [Unknown]
  - Pre-existing condition improved [Unknown]
  - Therapeutic response unexpected [Unknown]
  - Off label use [Unknown]
